FAERS Safety Report 14350016 (Version 2)
Quarter: 2018Q1

REPORT INFORMATION
  Report Type: Spontaneous
  Country: US (occurrence: US)
  Receive Date: 20180104
  Receipt Date: 20180209
  Transmission Date: 20180509
  Serious: No
  Sender: FDA-Public Use
  Company Number: US-009507513-1712USA005142

PATIENT
  Age: 28 Year
  Sex: Female
  Weight: 121.9 kg

DRUGS (2)
  1. NEXPLANON [Suspect]
     Active Substance: ETONOGESTREL
     Indication: CONTRACEPTION
     Dosage: ONE ROD (68 MG) PER 3 YEARS
     Route: 059
     Dates: start: 20140408, end: 20170531
  2. NEXPLANON [Suspect]
     Active Substance: ETONOGESTREL
     Dosage: ONE ROD (68 MG) PER 3 YEARS
     Route: 059
     Dates: start: 20170531

REACTIONS (3)
  - Incorrect drug administration duration [Unknown]
  - Menstruation irregular [Unknown]
  - Device breakage [Recovered/Resolved]

NARRATIVE: CASE EVENT DATE: 20170409
